FAERS Safety Report 13050372 (Version 1)
Quarter: 2016Q4

REPORT INFORMATION
  Report Type: Spontaneous
  Country: PT (occurrence: PT)
  Receive Date: 20161221
  Receipt Date: 20161221
  Transmission Date: 20170207
  Serious: Yes (Life-Threatening, Disabling)
  Sender: FDA-Public Use
  Company Number: PT-AUROBINDO-AUR-APL-2016-15521

PATIENT
  Age: 76 Year
  Sex: Female

DRUGS (7)
  1. BOSENTAN. [Concomitant]
     Active Substance: BOSENTAN
     Indication: PRODUCT USED FOR UNKNOWN INDICATION
  2. SIMVASTATIN. [Suspect]
     Active Substance: SIMVASTATIN
     Indication: PERIPHERAL ISCHAEMIA
     Dosage: UNK
     Route: 065
  3. ENOXAPARIN [Suspect]
     Active Substance: ENOXAPARIN
     Indication: PERIPHERAL ISCHAEMIA
     Dosage: FULL DOSE
  4. ACETYLSALICYLIC ACID [Suspect]
     Active Substance: ASPIRIN
     Indication: PERIPHERAL ISCHAEMIA
     Dosage: UNK
     Route: 065
  5. NIFEDIPINE. [Concomitant]
     Active Substance: NIFEDIPINE
     Indication: PRODUCT USED FOR UNKNOWN INDICATION
  6. SILDENAFIL. [Suspect]
     Active Substance: SILDENAFIL
     Indication: PERIPHERAL ISCHAEMIA
     Dosage: UNK
  7. PENTOXIFYLLINE. [Suspect]
     Active Substance: PENTOXIFYLLINE
     Indication: PERIPHERAL ISCHAEMIA

REACTIONS (1)
  - Drug ineffective [Unknown]
